FAERS Safety Report 4403563-5 (Version None)
Quarter: 2004Q3

REPORT INFORMATION
  Report Type: 
  Country: None (occurrence: None)
  Receive Date: 20040721
  Receipt Date: 20040713
  Transmission Date: 20050211
  Serious: Yes (Hospitalization)
  Sender: FDA-Public Use
  Company Number: FRPFM-C-2004002

PATIENT
  Age: 70 Year
  Sex: Female

DRUGS (13)
  1. NAVELBINE [Suspect]
     Indication: BREAST CANCER
     Dosage: 60MGM2 CYCLIC
     Route: 048
     Dates: start: 20030828
  2. NAVELBINE [Suspect]
     Dosage: 20MGM2 CYCLIC
     Route: 042
     Dates: start: 20030814
  3. DOCETAXEL [Suspect]
     Indication: BREAST CANCER
     Dosage: 60MGM2 CYCLIC
     Route: 042
     Dates: start: 20030814
  4. CAPTOPRIL [Concomitant]
  5. ACETAMINOPHEN [Concomitant]
  6. NYSTATIN [Concomitant]
  7. FLUCONAZOLE [Concomitant]
  8. CEFTRIAXONE [Concomitant]
  9. AMIKACIN [Concomitant]
  10. RANITIDINE [Concomitant]
  11. DEXAMETHASONE [Concomitant]
     Dates: start: 20031128, end: 20031128
  12. ONDANSETRON [Concomitant]
  13. FILGRASTIM [Concomitant]

REACTIONS (3)
  - GLUCOSE TOLERANCE IMPAIRED [None]
  - PNEUMONITIS [None]
  - SYNCOPE [None]
